FAERS Safety Report 5602096-8 (Version None)
Quarter: 2008Q1

REPORT INFORMATION
  Report Type: 
  Country: None (occurrence: None)
  Receive Date: 20080125
  Receipt Date: 20080121
  Transmission Date: 20080703
  Serious: Yes (Other)
  Sender: FDA-Public Use
  Company Number: DE-ALLERGAN-0800811US

PATIENT
  Sex: Female

DRUGS (1)
  1. DYSPORT [Suspect]
     Indication: HEMIPARESIS
     Dosage: 1000 UNITS, SINGLE
     Route: 030
     Dates: start: 20060401, end: 20060401

REACTIONS (1)
  - RASH [None]
